FAERS Safety Report 4878107-4 (Version None)
Quarter: 2006Q1

REPORT INFORMATION
  Report Type: 
  Country: None (occurrence: None)
  Receive Date: 20060110
  Receipt Date: 20060103
  Transmission Date: 20060701
  Serious: Yes (Other)
  Sender: FDA-Public Use
  Company Number: 28321

PATIENT
  Sex: Male

DRUGS (1)
  1. ALDARA [Suspect]
     Indication: ACTINIC KERATOSIS
     Dosage: (2 IN 1 WEEK (S)) TOPICAL
     Route: 061
     Dates: start: 20050517, end: 20050801

REACTIONS (4)
  - BODY TEMPERATURE FLUCTUATION [None]
  - INFLAMMATION [None]
  - INFLUENZA LIKE ILLNESS [None]
  - LETHARGY [None]
